FAERS Safety Report 4932281-X (Version None)
Quarter: 2006Q1

REPORT INFORMATION
  Report Type: 
  Country: None (occurrence: None)
  Receive Date: 20060228
  Receipt Date: 20060216
  Transmission Date: 20060701
  Serious: Yes (Hospitalization)
  Sender: FDA-Public Use
  Company Number: 2006024739

PATIENT
  Age: 74 Year
  Sex: Female
  Weight: 54 kg

DRUGS (5)
  1. GENOTROPIN [Suspect]
     Indication: HYPOPITUITARISM
     Dosage: 0.1 MG (1 IN 1 D), SUBCUTANEOUS
     Route: 058
     Dates: start: 20030630
  2. LEVOTHYROXINE SODIUM [Concomitant]
  3. CARBERGOLINE (CABERGOLINE) [Concomitant]
  4. DEXAMETHASONE [Concomitant]
  5. DHEA (PRASTERONE) [Concomitant]

REACTIONS (2)
  - FATIGUE [None]
  - SENSE OF OPPRESSION [None]
